FAERS Safety Report 7475728-X (Version None)
Quarter: 2011Q2

REPORT INFORMATION
  Report Type: 
  Country: None (occurrence: None)
  Receive Date: 20110504
  Receipt Date: 20110421
  Transmission Date: 20111010
  Serious: Yes (Hospitalization, Other)
  Sender: FDA-Public Use
  Company Number: CL-309-2011

PATIENT
  Age: 32 Year
  Sex: Male

DRUGS (6)
  1. FUROSEMIDE [Concomitant]
  2. AMIODARONE HCL [Suspect]
     Indication: ATRIAL TACHYCARDIA
     Dosage: SEE IMAGE
     Route: 042
  3. DIGOXIN [Concomitant]
  4. COUMADIN [Concomitant]
  5. SOTALOL HCL [Concomitant]
  6. LISINOPRIL [Concomitant]

REACTIONS (1)
  - MUSCLE SPASMS [None]
